FAERS Safety Report 5739702-3 (Version None)
Quarter: 2008Q2

REPORT INFORMATION
  Report Type: 
  Country: None (occurrence: None)
  Receive Date: 20080513
  Receipt Date: 20080501
  Transmission Date: 20081010
  Serious: Yes (Other)
  Sender: FDA-Public Use
  Company Number: WAES 0805USA00334

PATIENT
  Age: 79 Year
  Sex: Female

DRUGS (7)
  1. COZAAR [Suspect]
     Indication: HYPERTENSION
     Dosage: 50 MG/BID PO
     Route: 048
     Dates: start: 20020903, end: 20020920
  2. LASOFOXIFENE [Suspect]
     Indication: OSTEOPOROSIS
     Dosage: 0.25 MG/DAILY PO
     Route: 048
     Dates: start: 20020628
  3. AUTRIN [Concomitant]
  4. HYDRODIURIL [Concomitant]
  5. OS-CAL [Concomitant]
  6. CEPHALEXIN [Concomitant]
  7. SERRAPEPTASE [Concomitant]

REACTIONS (22)
  - ANGIOEDEMA [None]
  - ANXIETY [None]
  - BRONCHOSPASM [None]
  - CARDIAC FAILURE [None]
  - CELLULITIS [None]
  - DIARRHOEA [None]
  - DRUG HYPERSENSITIVITY [None]
  - DYSPNOEA [None]
  - ECZEMA [None]
  - ENTEROCOCCAL INFECTION [None]
  - FAECES DISCOLOURED [None]
  - GENERALISED OEDEMA [None]
  - GLOMERULONEPHRITIS ACUTE [None]
  - HYPERTENSION [None]
  - KLEBSIELLA INFECTION [None]
  - NEPHRITIS [None]
  - PRURITUS [None]
  - SOMNOLENCE [None]
  - SWELLING [None]
  - TACHYCARDIA [None]
  - TACHYPNOEA [None]
  - TREATMENT NONCOMPLIANCE [None]
